FAERS Safety Report 8831474 (Version 1)
Quarter: 2012Q4

REPORT INFORMATION
  Report Type: 
  Country: US (occurrence: US)
  Receive Date: 20121008
  Receipt Date: 20121008
  Transmission Date: 20130627
  Serious: Yes (Other)
  Sender: FDA-Public Use
  Company Number: US-GLAXOSMITHKLINE-A0995795A

PATIENT
  Age: 67 Year
  Sex: Male

DRUGS (5)
  1. VOTRIENT [Suspect]
     Indication: SARCOMA
     Dosage: 3TAB In the morning
     Route: 048
     Dates: start: 20120816
  2. BACTRIM [Concomitant]
  3. PRILOSEC [Concomitant]
  4. CELEBREX [Concomitant]
  5. CHEMOTHERAPY [Concomitant]
     Route: 065

REACTIONS (4)
  - Electrocardiogram QT prolonged [Not Recovered/Not Resolved]
  - Impaired healing [Not Recovered/Not Resolved]
  - Diarrhoea [Not Recovered/Not Resolved]
  - Fatigue [Not Recovered/Not Resolved]
